FAERS Safety Report 8237099-0 (Version None)
Quarter: 2012Q1

REPORT INFORMATION
  Report Type: 
  Country: None (occurrence: None)
  Receive Date: 20120327
  Receipt Date: 20120320
  Transmission Date: 20120608
  Serious: Yes (Death, Hospitalization)
  Sender: FDA-Public Use
  Company Number: US-BAYER-2011-079018

PATIENT
  Age: 62 Year
  Sex: Female
  Weight: 42.6 kg

DRUGS (8)
  1. SARGRAMOSTIM [Suspect]
     Dosage: CYCLE 3: 250 ?G, QD
     Route: 058
     Dates: start: 20110811, end: 20110824
  2. MDX-010 [Suspect]
     Dosage: CYCLE 2: 10 MG/KG, QD
     Route: 042
     Dates: start: 20110721
  3. MDX-010 [Suspect]
     Dosage: UNK
     Dates: end: 20111122
  4. MDX-010 [Suspect]
     Indication: MALIGNANT MELANOMA
     Dosage: CYCLE 1: 10 MG/KG, QD
     Route: 042
     Dates: start: 20110630
  5. SARGRAMOSTIM [Suspect]
     Indication: MALIGNANT MELANOMA
     Dosage: CYCLE 1: 250 ?G, QD
     Route: 058
     Dates: start: 20110630
  6. SARGRAMOSTIM [Suspect]
     Dosage: CYCLE 2: 250 ?G, QD
     Route: 058
  7. SARGRAMOSTIM [Suspect]
     Dosage: UNK
     Dates: end: 20120208
  8. MDX-010 [Suspect]
     Dosage: CYCLE 3: 10 MG/KG, QD
     Route: 042
     Dates: start: 20110811

REACTIONS (3)
  - PULMONARY EMBOLISM [None]
  - THROMBOSIS [None]
  - BLOOD CREATINE PHOSPHOKINASE INCREASED [None]
